FAERS Safety Report 21709988 (Version 3)
Quarter: 2023Q1

REPORT INFORMATION
  Report Type: Spontaneous
  Country: CA (occurrence: CA)
  Receive Date: 20221211
  Receipt Date: 20230220
  Transmission Date: 20230417
  Serious: Yes (Other)
  Sender: FDA-Public Use
  Company Number: CA-CELLTRION INC.-2022CA007129

PATIENT

DRUGS (2)
  1. INFLECTRA [Suspect]
     Active Substance: INFLIXIMAB-DYYB
     Indication: Colitis ulcerative
     Dosage: 10 MG/KG, EVERY 4 WEEKS
     Route: 042
     Dates: start: 20220519
  2. INFLECTRA [Suspect]
     Active Substance: INFLIXIMAB-DYYB
     Dosage: 10 MG/KG, EVERY 4 WEEKS
     Route: 042
     Dates: start: 20221103

REACTIONS (2)
  - Urinary tract infection [Recovered/Resolved]
  - Off label use [Unknown]

NARRATIVE: CASE EVENT DATE: 20221101
